FAERS Safety Report 13588659 (Version 1)
Quarter: 2017Q2

REPORT INFORMATION
  Report Type: Spontaneous
  Country: US (occurrence: US)
  Receive Date: 20170529
  Receipt Date: 20170529
  Transmission Date: 20170830
  Serious: Yes (Hospitalization, Other)
  Sender: FDA-Public Use
  Company Number: US-PFIZER INC-2017123778

PATIENT
  Age: 56 Year
  Sex: Male
  Weight: 77.11 kg

DRUGS (11)
  1. GABAPENTIN. [Concomitant]
     Active Substance: GABAPENTIN
     Indication: NEUROPATHY PERIPHERAL
     Dosage: 100 MG, 2X/DAY
  2. SERTRALINE [Concomitant]
     Active Substance: SERTRALINE HYDROCHLORIDE
     Indication: DEPRESSION
     Dosage: 100 MG, 1X/DAY
     Dates: start: 201609
  3. ATORVASTATIN [Concomitant]
     Active Substance: ATORVASTATIN
     Dosage: 80 MG ONCE DAILY IN THE EVENING
  4. REVATIO [Suspect]
     Active Substance: SILDENAFIL CITRATE
     Dosage: 20 MG, 3X/DAY
     Route: 048
  5. WARFARIN [Concomitant]
     Active Substance: WARFARIN
     Indication: ANTICOAGULANT THERAPY
     Dosage: UNK AS DIRECTED, CAN^T GET HIM STRAIGHT, DOSE CHANGES EVERY WEEK
     Dates: start: 2009
  6. DIGOXIN. [Concomitant]
     Active Substance: DIGOXIN
     Indication: CARDIAC DISORDER
     Dosage: 0.25 MG TUESDAY AND SATURDAY
  7. OMEPRAZOLE. [Concomitant]
     Active Substance: OMEPRAZOLE
     Indication: GASTROOESOPHAGEAL REFLUX DISEASE
     Dosage: 20 MG, 1X/DAY
  8. VITAMIN B12 [Concomitant]
     Active Substance: CYANOCOBALAMIN
     Indication: DIALYSIS
     Dosage: 1000 UG, DAILY
     Dates: start: 2016
  9. REVATIO [Suspect]
     Active Substance: SILDENAFIL CITRATE
     Indication: PULMONARY HYPERTENSION
     Dosage: 40 MG, 3X/DAY
     Dates: start: 2014
  10. NOVOLOG [Concomitant]
     Active Substance: INSULIN ASPART
     Indication: DIABETES MELLITUS
     Dosage: THROUGH INSULIN PUMP
     Dates: start: 201701
  11. NEPHROCAPS [Concomitant]
     Active Substance: ASCORBIC ACID\BIOTIN\CYANOCOBALAMIN\FOLIC ACID\NIACIN\PANTOTHENIC ACID\PYRIDOXINE\RIBOFLAVIN\THIAMINE
     Indication: DIALYSIS
     Dosage: 1 DF, 1X/DAY (ONE EACH AFTERNOON)
     Dates: start: 2016

REACTIONS (8)
  - Blood pressure decreased [Unknown]
  - Localised infection [Not Recovered/Not Resolved]
  - Weight fluctuation [Unknown]
  - Gastrointestinal haemorrhage [Unknown]
  - Gangrene [Unknown]
  - End stage renal disease [Not Recovered/Not Resolved]
  - Hypotension [Unknown]
  - Heart rate increased [Unknown]

NARRATIVE: CASE EVENT DATE: 201611
